FAERS Safety Report 15710666 (Version 1)
Quarter: 2018Q4

REPORT INFORMATION
  Report Type: Spontaneous
  Country: None (occurrence: US)
  Receive Date: 20181211
  Receipt Date: 20181211
  Transmission Date: 20190205
  Serious: Yes (Other)
  Sender: FDA-Public Use
  Company Number: US-AKRON, INC.-2060031

PATIENT
  Sex: Female

DRUGS (1)
  1. THERATEARS LUBRICANT EYE DROPS (PROFESSIONAL SAMPLE) [Suspect]
     Active Substance: CARBOXYMETHYLCELLULOSE SODIUM
     Route: 047

REACTIONS (4)
  - Ocular hyperaemia [Recovering/Resolving]
  - Eye pain [Recovering/Resolving]
  - Foreign body in eye [Recovering/Resolving]
  - Corneal abrasion [Recovering/Resolving]
